FAERS Safety Report 19074302 (Version 1)
Quarter: 2021Q1

REPORT INFORMATION
  Report Type: Report from Study
  Country: BR (occurrence: BR)
  Receive Date: 20210330
  Receipt Date: 20210330
  Transmission Date: 20210420
  Serious: Yes (Hospitalization, Other)
  Sender: FDA-Public Use
  Company Number: BR-TAKEDA-2021TUS019586

PATIENT
  Sex: Male

DRUGS (2)
  1. HEMO?8R [Suspect]
     Active Substance: ANTIHEMOPHILIC FACTOR, HUMAN RECOMBINANT
     Indication: FACTOR VIII DEFICIENCY
     Dosage: 1500 INTERNATIONAL UNIT, 2/WEEK
     Route: 042
  2. HEMO?8R [Suspect]
     Active Substance: ANTIHEMOPHILIC FACTOR, HUMAN RECOMBINANT
     Dosage: 2500 INTERNATIONAL UNIT, 1/WEEK
     Route: 042

REACTIONS (6)
  - Haematuria [Recovered/Resolved]
  - Renal colic [Recovering/Resolving]
  - Internal injury [Recovered/Resolved]
  - Visual impairment [Unknown]
  - Dengue fever [Recovered/Resolved]
  - Food allergy [Recovering/Resolving]
